FAERS Safety Report 6909505-2 (Version None)
Quarter: 2010Q3

REPORT INFORMATION
  Report Type: 
  Country: None (occurrence: None)
  Receive Date: 20100805
  Receipt Date: 20100726
  Transmission Date: 20110219
  Serious: Yes (Hospitalization)
  Sender: FDA-Public Use
  Company Number: BR-WATSON-2010-10260

PATIENT
  Age: 12 Year
  Sex: Male

DRUGS (3)
  1. SULFAMETHOXAZOLE AND TRIMETHOPRIM [Suspect]
     Indication: PARACOCCIDIOIDES INFECTION
     Dosage: 8 MG/KG, DAILY
     Dates: start: 20010501, end: 20070401
  2. ITRACONAZOLE [Suspect]
     Indication: PARACOCCIDIOIDES INFECTION
     Dosage: UNK
     Dates: start: 20070401
  3. AMPHOTERICIN B [Suspect]
     Indication: PARACOCCIDIOIDES INFECTION
     Dosage: 1 MG/KG PER DAY

REACTIONS (2)
  - IMMUNE RECONSTITUTION SYNDROME [None]
  - PARADOXICAL DRUG REACTION [None]
